FAERS Safety Report 8355408-9 (Version None)
Quarter: 2012Q2

REPORT INFORMATION
  Report Type: 
  Country: None (occurrence: None)
  Receive Date: 20120511
  Receipt Date: 20120510
  Transmission Date: 20120825
  Serious: Yes (Hospitalization, Other)
  Sender: FDA-Public Use
  Company Number: DE-ABBOTT-10P-062-0693157-00

PATIENT
  Sex: Female

DRUGS (3)
  1. BUDENOSID(ENDOCORT) [Concomitant]
  2. HUMIRA [Suspect]
     Indication: CROHN'S DISEASE
     Route: 058
     Dates: start: 20091102, end: 20110919
  3. HUMIRA [Suspect]
     Route: 058
     Dates: end: 20120419

REACTIONS (2)
  - GASTROINTESTINAL STENOSIS [None]
  - INTESTINAL OPERATION [None]
